FAERS Safety Report 5742148-5 (Version None)
Quarter: 2008Q2

REPORT INFORMATION
  Report Type: 
  Country: None (occurrence: None)
  Receive Date: 20080514
  Receipt Date: 20080514
  Transmission Date: 20081010
  Serious: No
  Sender: FDA-Public Use
  Company Number: None

PATIENT
  Age: 73 Year
  Sex: Male

DRUGS (1)
  1. DIGITEK [Suspect]
     Dosage: 0.25MG ONCE DAILY

REACTIONS (2)
  - DIARRHOEA [None]
  - VISUAL DISTURBANCE [None]
